FAERS Safety Report 23882231 (Version 2)
Quarter: 2024Q3

REPORT INFORMATION
  Report Type: Report from Study
  Country: US (occurrence: US)
  Receive Date: 20240522
  Receipt Date: 20240909
  Transmission Date: 20241017
  Serious: Yes (Hospitalization, Other)
  Sender: ABBVIE
  Company Number: US-ABBVIE-4707209

PATIENT
  Sex: Female

DRUGS (5)
  1. HUMIRA [Suspect]
     Active Substance: ADALIMUMAB
     Indication: Rheumatoid arthritis
     Dosage: FORM STRENGTH: 40 MG
     Route: 058
     Dates: start: 20160321
  2. HUMIRA [Suspect]
     Active Substance: ADALIMUMAB
     Indication: Uveitis
  3. HUMIRA [Suspect]
     Active Substance: ADALIMUMAB
     Indication: Uveitis
     Dosage: CITRATE FREE?FORM STRENGTH: 40MG
     Route: 058
     Dates: start: 20160222, end: 2016
  4. HUMIRA [Suspect]
     Active Substance: ADALIMUMAB
     Indication: Rheumatoid arthritis
     Dosage: CITRATE FREE?FORM STRENGTH: 40MG
     Route: 058
     Dates: start: 2024
  5. ROCEPHIN [Suspect]
     Active Substance: CEFTRIAXONE SODIUM
     Indication: Product used for unknown indication
     Route: 065

REACTIONS (14)
  - Knee operation [Recovered/Resolved]
  - Muscle rupture [Recovering/Resolving]
  - Rotator cuff repair [Recovering/Resolving]
  - Muscle strain [Recovering/Resolving]
  - Shoulder arthroplasty [Unknown]
  - Myalgia [Recovering/Resolving]
  - Shoulder arthroplasty [Recovering/Resolving]
  - Device loosening [Unknown]
  - Device related infection [Recovering/Resolving]
  - Drug hypersensitivity [Unknown]
  - Urticaria [Unknown]
  - Surgical failure [Unknown]
  - Shoulder arthroplasty [Unknown]
  - Eye disorder [Recovering/Resolving]

NARRATIVE: CASE EVENT DATE: 20190101
